FAERS Safety Report 6249746-3 (Version None)
Quarter: 2009Q2

REPORT INFORMATION
  Report Type: 
  Country: None (occurrence: None)
  Receive Date: 20090629
  Receipt Date: 20090625
  Transmission Date: 20091009
  Serious: Yes (Other)
  Sender: FDA-Public Use
  Company Number: FR-WYE-G03932809

PATIENT
  Age: 6 Year
  Sex: Female

DRUGS (1)
  1. ADVIL [Suspect]
     Indication: HYPERTHERMIA
     Route: 048
     Dates: start: 20080901, end: 20080901

REACTIONS (3)
  - ELECTROCARDIOGRAM T WAVE ABNORMAL [None]
  - INAPPROPRIATE SCHEDULE OF DRUG ADMINISTRATION [None]
  - SINUS ARRHYTHMIA [None]
